FAERS Safety Report 20694216 (Version 2)
Quarter: 2022Q3

REPORT INFORMATION
  Report Type: Spontaneous
  Country: FR (occurrence: None)
  Receive Date: 20220411
  Receipt Date: 20220711
  Transmission Date: 20221027
  Serious: Yes (Hospitalization, Other)
  Sender: FDA-Public Use
  Company Number: FR-ROCHE-3069165

PATIENT
  Sex: Male

DRUGS (12)
  1. CELLCEPT [Suspect]
     Active Substance: MYCOPHENOLATE MOFETIL
     Indication: Product used for unknown indication
     Dosage: MORNING AND EVENING
     Route: 065
  2. CELLCEPT [Suspect]
     Active Substance: MYCOPHENOLATE MOFETIL
     Route: 065
  3. NEORAL [Suspect]
     Active Substance: CYCLOSPORINE
     Indication: Product used for unknown indication
     Dosage: MORNING AND EVENING WITH RESIDUAL LEVELS AT 73 AND TARGET LEVELS BETWEEN 60 AND 80
     Route: 065
  4. PREDNISONE [Concomitant]
     Active Substance: PREDNISONE
  5. CERTICAN [Concomitant]
     Active Substance: EVEROLIMUS
  6. VITAMINS [Concomitant]
     Active Substance: VITAMINS
     Dosage: 1 TABLET IN THE MORNING
  7. LOSARTAN [Concomitant]
     Active Substance: LOSARTAN
     Dosage: 100 MG IN THE MORNING
  8. FUROSEMIDE [Concomitant]
     Active Substance: FUROSEMIDE
     Dosage: 40 MG IN THE MORNING
  9. PANTOPRAZOLE [Concomitant]
     Active Substance: PANTOPRAZOLE
     Dosage: 20 MG IN THE EVENING
  10. DOLIPRANE [Concomitant]
     Active Substance: ACETAMINOPHEN
  11. ASPIRIN [Concomitant]
     Active Substance: ASPIRIN
  12. CHOLECALCIFEROL [Concomitant]
     Active Substance: CHOLECALCIFEROL

REACTIONS (10)
  - Renal cancer [Unknown]
  - Neoplasm malignant [Unknown]
  - Infection susceptibility increased [Unknown]
  - Renal failure [Unknown]
  - Diabetes mellitus [Unknown]
  - Loose tooth [Unknown]
  - Hypertension [Unknown]
  - Acne [Unknown]
  - Hyperthyroidism [Unknown]
  - Blister [Unknown]
